FAERS Safety Report 4606405-8 (Version None)
Quarter: 2005Q1

REPORT INFORMATION
  Report Type: 
  Country: None (occurrence: None)
  Receive Date: 20050311
  Receipt Date: 20050121
  Transmission Date: 20050727
  Serious: Yes (Other)
  Sender: FDA-Public Use
  Company Number: PT-MERCK-0501PRT00004

PATIENT
  Age: 66 Year
  Sex: Male

DRUGS (5)
  1. ZETIA [Suspect]
     Indication: DYSLIPIDAEMIA
     Route: 048
     Dates: start: 20041001, end: 20041226
  2. METOPROLOL TARTRATE [Concomitant]
     Indication: MYOCARDIAL INFARCTION
     Route: 048
     Dates: start: 20030101, end: 20050112
  3. TICLOPIDINE HYDROCHLORIDE [Concomitant]
     Indication: ANTIPLATELET THERAPY
     Route: 048
     Dates: start: 20041001, end: 20041226
  4. PERINDOPRIL ERBUMINE [Concomitant]
     Indication: HYPERTENSION
     Route: 048
     Dates: start: 20041001, end: 20041226
  5. ATORVASTATIN CALCIUM [Concomitant]
     Indication: DYSLIPIDAEMIA
     Route: 048
     Dates: start: 20030101, end: 20050112

REACTIONS (3)
  - HEPATITIS TOXIC [None]
  - PRURITUS [None]
  - URTICARIA [None]
